FAERS Safety Report 20649293 (Version 1)
Quarter: 2022Q1

REPORT INFORMATION
  Report Type: Spontaneous
  Country: IL (occurrence: IL)
  Receive Date: 20220329
  Receipt Date: 20220329
  Transmission Date: 20220423
  Serious: Yes (Death, Other)
  Sender: FDA-Public Use
  Company Number: IL-PFIZER INC-202200475835

PATIENT
  Age: 76 Year
  Sex: Female

DRUGS (12)
  1. PAXLOVID [Suspect]
     Active Substance: NIRMATRELVIR\RITONAVIR
  2. SULFAMETHOXAZOLE\TRIMETHOPRIM [Concomitant]
     Active Substance: SULFAMETHOXAZOLE\TRIMETHOPRIM
  3. DISEPTYL FORTE [Concomitant]
  4. ASPIRIN [Concomitant]
     Active Substance: ASPIRIN
  5. DEXAMETHASONE [Concomitant]
     Active Substance: DEXAMETHASONE
  6. CALCIMORE [Concomitant]
  7. LENALIDOMIDE [Concomitant]
     Active Substance: LENALIDOMIDE
  8. REVLIMID [Concomitant]
     Active Substance: LENALIDOMIDE
  9. ACYCLO-V [Concomitant]
  10. ASPIRIN [Concomitant]
     Active Substance: ASPIRIN
  11. VITAMIDYNE D [Concomitant]
  12. LENALIDOMIDE [Concomitant]
     Active Substance: LENALIDOMIDE

REACTIONS (2)
  - Cardiac arrest [Fatal]
  - Hepatic enzyme increased [Unknown]
